FAERS Safety Report 9126885 (Version 1)
Quarter: 2013Q1

REPORT INFORMATION
  Report Type: Spontaneous
  Country: CH (occurrence: CH)
  Receive Date: 20130122
  Receipt Date: 20130122
  Transmission Date: 20140127
  Serious: Yes (Other)
  Sender: FDA-Public Use
  Company Number: CH-ASTRAZENECA-2013SE02329

PATIENT
  Sex: Male

DRUGS (2)
  1. BICALUTAMIDE [Suspect]
     Indication: PROSTATE CANCER
     Route: 048
  2. GOSERELIN [Suspect]
     Indication: PROSTATE CANCER
     Route: 058

REACTIONS (1)
  - Urinary retention [Unknown]
